FAERS Safety Report 5119166-3 (Version None)
Quarter: 2006Q3

REPORT INFORMATION
  Report Type: 
  Country: None (occurrence: None)
  Receive Date: 20060929
  Receipt Date: 20060929
  Transmission Date: 20061208
  Serious: Yes (Hospitalization, Disabling)
  Sender: FDA-Public Use
  Company Number: None

PATIENT
  Sex: Male

DRUGS (1)
  1. PHOSPHOSODA GINGER LEMON [Suspect]
     Indication: COLONOSCOPY
     Dosage: ; PO
     Route: 048
     Dates: start: 20020901, end: 20020901

REACTIONS (9)
  - ANAEMIA [None]
  - ARTERIOVENOUS FISTULA SITE HAEMORRHAGE [None]
  - ASTHENIA [None]
  - DIALYSIS [None]
  - FATIGUE [None]
  - INFLUENZA LIKE ILLNESS [None]
  - PAIN [None]
  - POST PROCEDURAL COMPLICATION [None]
  - RENAL FAILURE [None]
